FAERS Safety Report 7598455-7 (Version None)
Quarter: 2011Q3

REPORT INFORMATION
  Report Type: 
  Country: None (occurrence: None)
  Receive Date: 20110708
  Receipt Date: 20110630
  Transmission Date: 20111222
  Serious: Yes (Death, Hospitalization)
  Sender: FDA-Public Use
  Company Number: US-MERCK-1105USA01167

PATIENT
  Age: 78 Year
  Sex: Female

DRUGS (6)
  1. FOSAMAX [Suspect]
     Indication: OSTEOPOROSIS
     Route: 048
     Dates: start: 20010101, end: 20090401
  2. CITALOPRAM [Concomitant]
     Indication: DEPRESSION
     Route: 065
     Dates: end: 20101201
  3. TRAVATAN [Concomitant]
     Indication: INTRAOCULAR PRESSURE TEST
     Route: 065
     Dates: end: 20101201
  4. CALCIUM (UNSPECIFIED) [Concomitant]
     Route: 065
  5. CHONDROITIN SULFATE SODIUM AND GLUCOSAMINE SULFATE [Concomitant]
     Indication: OSTEOARTHRITIS
     Route: 065
     Dates: end: 20101201
  6. VITAMINS (UNSPECIFIED) [Concomitant]
     Route: 048

REACTIONS (5)
  - ADVERSE EVENT [None]
  - WRIST FRACTURE [None]
  - FALL [None]
  - NERVE COMPRESSION [None]
  - FEMUR FRACTURE [None]
